FAERS Safety Report 8535940-5 (Version None)
Quarter: 2012Q3

REPORT INFORMATION
  Report Type: 
  Country: None (occurrence: None)
  Receive Date: 20120725
  Receipt Date: 20120720
  Transmission Date: 20120928
  Serious: Yes (Other)
  Sender: FDA-Public Use
  Company Number: PHHY2011JP86421

PATIENT
  Sex: Male

DRUGS (15)
  1. CLOZARIL [Suspect]
     Dosage: 75 MG, DAILY
     Route: 048
     Dates: start: 20110916, end: 20110917
  2. CLOZARIL [Suspect]
     Dosage: 50 MG, DAILY
     Route: 048
     Dates: start: 20110913, end: 20110915
  3. PEROSPIRONE HYDROCHLORIDE HYDRATE [Concomitant]
     Dosage: 24 MG, UNK
     Route: 048
     Dates: start: 20110909, end: 20110915
  4. MAGLAX [Concomitant]
     Indication: SCHIZOPHRENIA, PARANOID TYPE
     Dosage: 1000 MG
     Route: 048
  5. CLOZARIL [Suspect]
     Indication: SCHIZOPHRENIA, PARANOID TYPE
     Dosage: 12.5 MG, DAILY
     Route: 048
     Dates: start: 20110909, end: 20110909
  6. CLOZARIL [Suspect]
     Dosage: 50 MG, DAILY
     Route: 048
     Dates: start: 20110915
  7. ARTANE [Concomitant]
     Dosage: 6 MG, UNK
     Route: 048
  8. MICARDIS [Concomitant]
     Dosage: 60 MG
     Route: 048
     Dates: start: 20110305
  9. CLOZARIL [Suspect]
     Dosage: 25 MG, DAILY
     Route: 048
     Dates: start: 20110910, end: 20110912
  10. LITHIUM CARBONATE [Concomitant]
     Indication: SCHIZOPHRENIA, PARANOID TYPE
     Dosage: 600 MG
     Route: 048
     Dates: start: 20110902, end: 20110926
  11. CLOZARIL [Suspect]
     Dosage: 100 MG, DAILY
     Route: 048
     Dates: start: 20110918, end: 20110919
  12. MUCOSTA [Concomitant]
     Indication: SCHIZOPHRENIA, PARANOID TYPE
     Dosage: 300 MG
     Route: 048
     Dates: end: 20111013
  13. CLOZARIL [Suspect]
     Dosage: 125 MG, DAILY
     Route: 048
     Dates: start: 20110920, end: 20110926
  14. ZYPREXA [Concomitant]
     Route: 048
  15. SILECE [Concomitant]
     Indication: SCHIZOPHRENIA, PARANOID TYPE
     Dosage: 1 MG
     Route: 048
     Dates: end: 20110915

REACTIONS (8)
  - PLEURAL EFFUSION [None]
  - RED BLOOD CELL COUNT DECREASED [None]
  - MYOCLONUS [None]
  - TREMOR [None]
  - HAEMOGLOBIN DECREASED [None]
  - HYPOPHAGIA [None]
  - PARKINSONIAN GAIT [None]
  - HAEMATOCRIT DECREASED [None]
